FAERS Safety Report 21239355 (Version 3)
Quarter: 2022Q4

REPORT INFORMATION
  Report Type: Spontaneous
  Country: GB (occurrence: GB)
  Receive Date: 20220822
  Receipt Date: 20221028
  Transmission Date: 20230112
  Serious: Yes (Death, Life-Threatening, Hospitalization, Disabling, Other)
  Sender: FDA-Public Use
  Company Number: GB-LICONSA-2019-004448

PATIENT
  Age: 76 Year
  Sex: Male
  Weight: 69 kg

DRUGS (21)
  1. OMEPRAZOLE [Suspect]
     Active Substance: OMEPRAZOLE
     Indication: Product used for unknown indication
     Dosage: OMEPRAZOLE CHEMO IBERICA 20 MG DAILY
     Route: 048
  2. TACROLIMUS [Interacting]
     Active Substance: TACROLIMUS
     Indication: Renal transplant
     Dosage: TACROLIMUS 2 MG TWICE DAILY
     Route: 048
  3. TACROLIMUS [Interacting]
     Active Substance: TACROLIMUS
     Dosage: TACROLIMUS 1.5 MG TWICE A DAY
  4. CLARITHROMYCIN [Interacting]
     Active Substance: CLARITHROMYCIN
     Indication: Pneumonia
     Dosage: 500 MILLIGRAM, QOD
     Route: 042
  5. BISOPROLOL [Suspect]
     Active Substance: BISOPROLOL
     Dosage: UNK
  6. CEFUROXIME [Suspect]
     Active Substance: CEFUROXIME
     Dosage: UNK
  7. FUROSEMIDE [Concomitant]
     Active Substance: FUROSEMIDE
     Indication: Product used for unknown indication
     Dosage: FUROSEMIDE 80MG OM PO O/A
     Route: 048
  8. ALBUTEROL [Concomitant]
     Active Substance: ALBUTEROL
  9. PREDNISOLONE [Concomitant]
     Active Substance: PREDNISOLONE
     Dosage: INCREASE PREDNISOLONE TO 10 MG FOR 5 DAYS
  10. GLICLAZIDE [Concomitant]
     Active Substance: GLICLAZIDE
     Dosage: GLICLAZIDE 40MG OM PO O/A
     Route: 048
  11. ALLOPURINOL [Concomitant]
     Active Substance: ALLOPURINOL
     Dosage: ALLOPURINOL 100MG OD PO O/A
  12. GLUCAGON [Concomitant]
     Active Substance: GLUCAGON
     Dosage: UNK
     Route: 030
  13. DEXTROSE [Concomitant]
     Active Substance: DEXTROSE
     Dosage: UNK
  14. hydrocortisone iv 50 mg [Concomitant]
     Dosage: HYDRORTISIONE 50 MG THREE TIMES A DAY
     Route: 042
  15. SENNA [Concomitant]
     Active Substance: SENNA LEAF\SENNOSIDES\SENNOSIDES A AND B
     Dosage: SENNA 15MG ON PO O/A
     Route: 048
  16. NITROGLYCERIN [Concomitant]
     Active Substance: NITROGLYCERIN
  17. EPLERENONE [Concomitant]
     Active Substance: EPLERENONE
     Dosage: EPLERENONE 25MG OM PO O/A
  18. EPLERENONE [Concomitant]
     Active Substance: EPLERENONE
     Dosage: 25 MG, QMO
     Route: 048
  19. DOXYCYCLINE [Concomitant]
     Active Substance: DOXYCYCLINE
  20. ALFACALCIDOL [Concomitant]
     Active Substance: ALFACALCIDOL
     Dosage: ALFACALCIDOL 500NG OD PO O/A
  21. BETAHISTINE [Concomitant]
     Active Substance: BETAHISTINE
     Dosage: BETAHISTINE 8MG OM PO

REACTIONS (6)
  - Pneumonia [Unknown]
  - Drug interaction [Unknown]
  - Acute kidney injury [Fatal]
  - Oesophageal carcinoma [Fatal]
  - Cardiac failure congestive [Fatal]
  - Myocardial ischaemia [Fatal]

NARRATIVE: CASE EVENT DATE: 20180127
